FAERS Safety Report 9752445 (Version 2)
Quarter: 2014Q2

REPORT INFORMATION
  Report Type: Report from Study
  Country: JP (occurrence: JP)
  Receive Date: 20131213
  Receipt Date: 20140404
  Transmission Date: 20141212
  Serious: Yes (Death, Hospitalization, Other)
  Sender: FDA-Public Use
  Company Number: JP-AMGEN-JPNCT2013087558

PATIENT
  Age: 78 Year
  Sex: Male
  Weight: 72 kg

DRUGS (16)
  1. DARBEPOETIN ALFA [Suspect]
     Indication: NEPHROGENIC ANAEMIA
     Dosage: 20 MUG, UNK
     Route: 058
     Dates: start: 20110819, end: 20130313
  2. BAYASPIRIN [Concomitant]
     Dosage: UNK
     Route: 048
  3. TENORMIN [Concomitant]
     Dosage: UNK
     Route: 048
  4. ATELEC [Concomitant]
     Dosage: UNK
     Route: 048
  5. RENIVACE [Concomitant]
     Indication: NEPHROSCLEROSIS
     Dosage: UNK
     Route: 048
  6. MEVALOTIN [Concomitant]
     Dosage: UNK
     Route: 048
  7. PURSENNIDE                         /00571901/ [Concomitant]
     Dosage: UNK
     Route: 048
  8. GLUFAST [Concomitant]
     Dosage: UNK
     Route: 048
  9. LASIX                              /00032601/ [Concomitant]
     Indication: NEPHROSCLEROSIS
     Dosage: UNK
     Route: 048
  10. CO-DIOVAN [Concomitant]
     Indication: NEPHROSCLEROSIS
     Dosage: UNK
     Route: 048
  11. CARDENALIN [Concomitant]
     Dosage: UNK
     Route: 048
  12. EQUA [Concomitant]
     Dosage: UNK
     Route: 048
  13. PROTECADIN [Concomitant]
     Dosage: UNK
     Route: 048
  14. AMLODIN [Concomitant]
     Dosage: UNK
     Route: 048
  15. BIASAN [Concomitant]
     Dosage: UNK
     Route: 048
  16. FEBURIC [Concomitant]
     Dosage: UNK
     Route: 048

REACTIONS (2)
  - Gastric cancer [Fatal]
  - Cerebral infarction [Recovered/Resolved with Sequelae]
